FAERS Safety Report 25946307 (Version 1)
Quarter: 2025Q4

REPORT INFORMATION
  Report Type: Other
  Country: AU (occurrence: AU)
  Receive Date: 20251022
  Receipt Date: 20251022
  Transmission Date: 20260117
  Serious: Yes (Hospitalization, Other)
  Sender: NOVUGEN ONCOLOGY SDN. BHD.
  Company Number: AU-Novugen Oncology Sdn. Bhd.-2187034

PATIENT
  Age: 62 Year
  Sex: Female

DRUGS (1)
  1. PAZOPANIB HYDROCHLORIDE [Suspect]
     Active Substance: PAZOPANIB HYDROCHLORIDE
     Indication: Leiomyosarcoma

REACTIONS (2)
  - Psychotic symptom [Recovered/Resolved]
  - Mania [Recovered/Resolved]
